FAERS Safety Report 5279456-0 (Version None)
Quarter: 2007Q1

REPORT INFORMATION
  Report Type: 
  Country: None (occurrence: None)
  Receive Date: 20070328
  Receipt Date: 20070313
  Transmission Date: 20070707
  Serious: Yes (Other)
  Sender: FDA-Public Use
  Company Number: US-SHR-US-2005-023809

PATIENT
  Age: 62 Year
  Sex: Male

DRUGS (3)
  1. BETASERON [Suspect]
     Indication: RELAPSING-REMITTING MULTIPLE SCLEROSIS
     Dosage: 8 MIU, EVERY 2D
     Route: 058
     Dates: start: 20050629, end: 20051103
  2. ANTIHYPERTENSIVES [Concomitant]
     Indication: HYPERTENSION
     Dosage: UNK, 1X/DAY
     Route: 048
  3. ORAL ANTIDIABETICS [Concomitant]
     Dosage: UNK, 1X/DAY
     Route: 048

REACTIONS (2)
  - MALAISE [None]
  - PARALYSIS [None]
